FAERS Safety Report 13765608 (Version 2)
Quarter: 2017Q4

REPORT INFORMATION
  Report Type: Spontaneous
  Country: US (occurrence: US)
  Receive Date: 20170718
  Receipt Date: 20171018
  Transmission Date: 20180320
  Serious: Yes (Other)
  Sender: FDA-Public Use
  Company Number: US-REGENERON PHARMACEUTICALS, INC.-2017-18404

PATIENT

DRUGS (2)
  1. EYLEA [Suspect]
     Active Substance: AFLIBERCEPT
     Indication: AGE-RELATED MACULAR DEGENERATION
     Dosage: 2 MG, 12 WEEKS, RIGHT EYE
     Route: 031
     Dates: start: 20120326, end: 20170305
  2. EYLEA [Suspect]
     Active Substance: AFLIBERCEPT
     Dosage: 2 MG, 12 WEEKS, RIGHT EYE, LAST DOSE
     Route: 031
     Dates: start: 20170305, end: 20170305

REACTIONS (4)
  - Visual acuity reduced [Unknown]
  - Vitreous haze [Recovered/Resolved]
  - Eye inflammation [Recovered/Resolved]
  - Vitreous floaters [Recovered/Resolved]

NARRATIVE: CASE EVENT DATE: 20170508
